FAERS Safety Report 19066829 (Version 3)
Quarter: 2021Q2

REPORT INFORMATION
  Report Type: Report from Study
  Country: TH (occurrence: TH)
  Receive Date: 20210329
  Receipt Date: 20210513
  Transmission Date: 20210717
  Serious: Yes (Hospitalization)
  Sender: FDA-Public Use
  Company Number: TH-009507513-2103THA006672

PATIENT
  Age: 76 Year
  Sex: Male

DRUGS (8)
  1. RENVELA [Concomitant]
     Active Substance: SEVELAMER CARBONATE
  2. JANUVIA [Concomitant]
     Active Substance: SITAGLIPTIN PHOSPHATE
  3. PEMBROLIZUMAB. [Suspect]
     Active Substance: PEMBROLIZUMAB
     Indication: TRANSITIONAL CELL CARCINOMA
     Dosage: STRENGTH: 100 MILLIGRAM; 200 MILLIGRAM, Q3W
     Route: 042
     Dates: start: 20210319
  4. PEMBROLIZUMAB. [Suspect]
     Active Substance: PEMBROLIZUMAB
     Dosage: 200 MILLIGRAM
     Dates: start: 20210428
  5. TOUJEO [Concomitant]
     Active Substance: INSULIN GLARGINE
  6. SODAMINT (SODIUM BICARBONATE) [Concomitant]
  7. LASIX [Concomitant]
     Active Substance: FUROSEMIDE
  8. PEMBROLIZUMAB. [Suspect]
     Active Substance: PEMBROLIZUMAB
     Dosage: 200 MILLIGRAM
     Dates: start: 20210409

REACTIONS (3)
  - Urinary tract infection [Unknown]
  - Inappropriate schedule of product administration [Unknown]
  - White blood cells urine [Not Recovered/Not Resolved]

NARRATIVE: CASE EVENT DATE: 20210320
